FAERS Safety Report 9852185 (Version 2)
Quarter: 2014Q1

REPORT INFORMATION
  Report Type: Spontaneous
  Country: US (occurrence: US)
  Receive Date: 20140129
  Receipt Date: 20140129
  Transmission Date: 20141002
  Serious: Yes (Hospitalization)
  Sender: FDA-Public Use
  Company Number: US-BRACCO-009310

PATIENT
  Age: 53 Year
  Sex: Male

DRUGS (4)
  1. FLOMAX [Concomitant]
  2. LORTAB [Concomitant]
  3. NIACIN [Concomitant]
  4. MULTIHANCE [Suspect]
     Indication: NUCLEAR MAGNETIC RESONANCE IMAGING
     Route: 040
     Dates: start: 20130308, end: 20130308

REACTIONS (1)
  - Anaphylactic shock [Unknown]
